FAERS Safety Report 5147093-4 (Version None)
Quarter: 2006Q4

REPORT INFORMATION
  Report Type: 
  Country: None (occurrence: None)
  Receive Date: 20061103
  Receipt Date: 20061027
  Transmission Date: 20070319
  Serious: Yes (Hospitalization)
  Sender: FDA-Public Use
  Company Number: GXKR2006JP06753

PATIENT
  Age: 82 Year
  Sex: Female

DRUGS (2)
  1. ZOLPIDEM (NGX) (ZOLPIDEM) UNKNOWN [Suspect]
     Indication: MAJOR DEPRESSION
     Dosage: 10 MG, QHS
  2. FLUVOXAMINE MALEATE [Suspect]
     Indication: MAJOR DEPRESSION
     Dosage: 50 MG, QD; SEE IMAGE

REACTIONS (6)
  - AMNESIA [None]
  - DEPRESSION [None]
  - DRUG INTERACTION [None]
  - HALLUCINATION, VISUAL [None]
  - SUICIDAL IDEATION [None]
  - THERAPY NON-RESPONDER [None]
